FAERS Safety Report 12631462 (Version 2)
Quarter: 2016Q3

REPORT INFORMATION
  Report Type: Spontaneous
  Country: US (occurrence: US)
  Receive Date: 20160808
  Receipt Date: 20160808
  Transmission Date: 20161109
  Serious: No
  Sender: FDA-Public Use
  Company Number: US-BEH-2015054011

PATIENT
  Sex: Female
  Weight: 63 kg

DRUGS (13)
  1. ACETAMINOPHEN. [Concomitant]
     Active Substance: ACETAMINOPHEN
  2. DIPHENHYDRAMINE. [Concomitant]
     Active Substance: DIPHENHYDRAMINE
     Indication: ANAPHYLACTIC REACTION
  3. VITAMIN C [Concomitant]
     Active Substance: ASCORBIC ACID
  4. MEGA MULTIVITAMIN [Concomitant]
  5. CALCIUM [Concomitant]
     Active Substance: CALCIUM
  6. HIZENTRA [Suspect]
     Active Substance: HUMAN IMMUNOGLOBULIN G
     Indication: IMMUNODEFICIENCY COMMON VARIABLE
     Route: 058
  7. EPIPEN [Concomitant]
     Active Substance: EPINEPHRINE
     Indication: ANAPHYLACTIC REACTION
  8. GABAPENTIN. [Concomitant]
     Active Substance: GABAPENTIN
  9. SULFAMETHOXAZOLE TMP DS [Concomitant]
  10. VITAMIN D3 [Concomitant]
     Active Substance: CHOLECALCIFEROL
  11. SULFAMYLON [Concomitant]
     Active Substance: MAFENIDE ACETATE
  12. LIDOCAINE. [Concomitant]
     Active Substance: LIDOCAINE
  13. FERROUS SULFATE. [Concomitant]
     Active Substance: FERROUS SULFATE

REACTIONS (1)
  - Pyrexia [Unknown]
